FAERS Safety Report 9646236 (Version 2)
Quarter: 2014Q1

REPORT INFORMATION
  Report Type: Spontaneous
  Country: BR (occurrence: BR)
  Receive Date: 20131025
  Receipt Date: 20140117
  Transmission Date: 20141002
  Serious: Yes (Hospitalization, Other)
  Sender: FDA-Public Use
  Company Number: BR-ELI_LILLY_AND_COMPANY-BR201310004507

PATIENT
  Age: 58 Year
  Sex: Female
  Weight: 86 kg

DRUGS (13)
  1. HUMULIN N [Suspect]
     Indication: PRODUCT USED FOR UNKNOWN INDICATION
     Dosage: 26 IU, EACH MORNING
     Route: 058
  2. HUMULIN N [Suspect]
     Dosage: 22 IU, QD
     Route: 058
  3. HUMULIN N [Suspect]
     Dosage: 28 IU, EACH EVENING
     Route: 058
  4. HUMALOG [Suspect]
     Indication: PRODUCT USED FOR UNKNOWN INDICATION
     Dosage: 18 IU, EACH MORNING
     Route: 058
     Dates: start: 201308
  5. HUMALOG [Suspect]
     Dosage: 16 IU, QD
     Route: 058
     Dates: start: 201308
  6. HUMALOG [Suspect]
     Dosage: 14 IU, EACH EVENING
     Route: 058
     Dates: start: 201308
  7. EUTHYROX [Concomitant]
     Indication: THYROID DISORDER
     Dosage: 88 MG, UNKNOWN
     Route: 065
  8. METFORMIN HYDROCHLORIDE [Concomitant]
     Indication: DIABETES MELLITUS
     Dosage: UNK, TID
     Route: 065
  9. SINVASTATINA [Concomitant]
     Indication: BLOOD CHOLESTEROL
  10. PANTOPRAZOL [Concomitant]
     Indication: GASTRIC DISORDER
     Dosage: 40 MG, UNKNOWN
     Route: 065
  11. VITAMINA D [Concomitant]
     Indication: PRODUCT USED FOR UNKNOWN INDICATION
     Dosage: UNK, UNKNOWN
     Route: 065
  12. CLAVULIN [Concomitant]
     Indication: PRODUCT USED FOR UNKNOWN INDICATION
     Dosage: UNK, UNKNOWN
     Route: 065
  13. BUSCOPAN COMPOSTO [Concomitant]
     Indication: ABDOMINAL PAIN
     Dosage: UNK, UNKNOWN
     Route: 065

REACTIONS (12)
  - Intervertebral disc protrusion [Recovering/Resolving]
  - Pain in extremity [Unknown]
  - Peripheral paralysis [Recovering/Resolving]
  - Laryngeal oedema [Unknown]
  - Functional gastrointestinal disorder [Recovered/Resolved]
  - Bladder dysfunction [Recovered/Resolved]
  - Blood glucose abnormal [Unknown]
  - Movement disorder [Not Recovered/Not Resolved]
  - Fall [Unknown]
  - Device dislocation [Not Recovered/Not Resolved]
  - Joint injury [Recovering/Resolving]
  - Wound infection [Not Recovered/Not Resolved]
